FAERS Safety Report 5153808-1 (Version None)
Quarter: 2006Q4

REPORT INFORMATION
  Report Type: 
  Country: None (occurrence: None)
  Receive Date: 20061120
  Receipt Date: 20061109
  Transmission Date: 20070319
  Serious: Yes (Death)
  Sender: FDA-Public Use
  Company Number: JP-BAYER-200611192BYL

PATIENT
  Age: 61 Year
  Sex: Male

DRUGS (2)
  1. ADALAT [Suspect]
     Indication: BLOOD PRESSURE INCREASED
     Dosage: TOTAL DAILY DOSE: 10 MG  UNIT DOSE: 10 MG
     Route: 060
     Dates: start: 20021218, end: 20021218
  2. XYLOCAINE [Suspect]
     Indication: ANAESTHESIA
     Route: 065
     Dates: start: 20021218, end: 20021218

REACTIONS (2)
  - ANAPHYLACTIC SHOCK [None]
  - CARDIO-RESPIRATORY ARREST [None]
